FAERS Safety Report 10199494 (Version 3)
Quarter: 2014Q3

REPORT INFORMATION
  Report Type: Spontaneous
  Country: US (occurrence: US)
  Receive Date: 20140527
  Receipt Date: 20140718
  Transmission Date: 20150326
  Serious: Yes (Other)
  Sender: FDA-Public Use
  Company Number: US-ALLERGAN-1410301US

PATIENT
  Age: 81 Year
  Sex: Male
  Weight: 79.82 kg

DRUGS (11)
  1. LUMIGAN [Suspect]
     Active Substance: BIMATOPROST
     Indication: GLAUCOMA
     Dosage: 1 DROP IN EACH EYE, AT BEDTIME
     Route: 047
     Dates: start: 201405
  2. ASPIRIN EC [Concomitant]
     Active Substance: ASPIRIN
     Dosage: 325 MG, DAILY
     Route: 048
  3. METOPROLOL SUCCINATE ER [Concomitant]
     Active Substance: METOPROLOL SUCCINATE
     Dosage: 25MG (1/2 TABLET) DAILY
     Route: 048
     Dates: start: 201405
  4. ZOCOR [Concomitant]
     Active Substance: SIMVASTATIN
     Indication: BLOOD CHOLESTEROL INCREASED
     Dosage: 20 MG, QHS
     Route: 048
     Dates: start: 2009
  5. TERAZOSIN [Concomitant]
     Active Substance: TERAZOSIN\TERAZOSIN HYDROCHLORIDE
     Dosage: 5 MG, AT NIGHT
     Route: 048
     Dates: start: 2011
  6. LUMIGAN [Suspect]
     Active Substance: BIMATOPROST
     Indication: INTRAOCULAR PRESSURE INCREASED
     Dosage: 1 DROP TO THE LEFT EYE, AT BEDTIME
     Route: 047
  7. LISINOPRIL. [Concomitant]
     Active Substance: LISINOPRIL
     Indication: HYPERTENSION
     Dosage: UNK
     Dates: start: 2011
  8. METOPROLOL SUCCINATE ER [Concomitant]
     Active Substance: METOPROLOL SUCCINATE
     Dosage: 50 MG, DAILY
     Route: 048
  9. SIMVASTATIN. [Concomitant]
     Active Substance: SIMVASTATIN
     Dosage: 20 MG, QPM
     Route: 048
  10. LISINOPRIL HCTZ [Concomitant]
     Active Substance: HYDROCHLOROTHIAZIDE\LISINOPRIL
     Dosage: 12.5MG/20MG 1 TABLET, DAILY
     Route: 048
  11. TRAVATAN Z [Concomitant]
     Active Substance: TRAVOPROST

REACTIONS (7)
  - Hypoglycaemia [Unknown]
  - Dizziness [Recovered/Resolved]
  - Bradycardia [Unknown]
  - Pain in extremity [Recovered/Resolved]
  - Loss of consciousness [Recovered/Resolved]
  - Bundle branch block right [Unknown]
  - Protein total decreased [Recovered/Resolved]

NARRATIVE: CASE EVENT DATE: 201404
